FAERS Safety Report 19772948 (Version 1)
Quarter: 2021Q3

REPORT INFORMATION
  Report Type: Spontaneous
  Country: US (occurrence: US)
  Receive Date: 20210901
  Receipt Date: 20210901
  Transmission Date: 20211014
  Serious: No
  Sender: FDA-Public Use
  Company Number: US-JNJFOC-20210819545

PATIENT
  Age: 81 Year
  Sex: Female

DRUGS (1)
  1. OPSUMIT [Suspect]
     Active Substance: MACITENTAN
     Indication: PRODUCT USED FOR UNKNOWN INDICATION
     Route: 065
     Dates: start: 20210730, end: 20210804

REACTIONS (6)
  - Abdominal distension [Recovered/Resolved]
  - Ocular hyperaemia [Recovered/Resolved]
  - Oropharyngeal pain [Recovered/Resolved]
  - Eye swelling [Recovered/Resolved]
  - Rhinorrhoea [Recovered/Resolved]
  - Weight increased [Recovered/Resolved]

NARRATIVE: CASE EVENT DATE: 20210730
